FAERS Safety Report 24229628 (Version 1)
Quarter: 2024Q3

REPORT INFORMATION
  Report Type: Spontaneous
  Country: US (occurrence: US)
  Receive Date: 20240820
  Receipt Date: 20240820
  Transmission Date: 20241016
  Serious: No
  Sender: COVIS PHARMA
  Company Number: US-Covis Pharma GmbH-2024COV00961

PATIENT
  Sex: Female
  Weight: 65.58 kg

DRUGS (5)
  1. RILUZOLE [Suspect]
     Active Substance: RILUZOLE
     Indication: Product used for unknown indication
     Route: 048
  2. RADICAVA ORS [Suspect]
     Active Substance: EDARAVONE
     Indication: Amyotrophic lateral sclerosis
  3. RELYVRIO [Suspect]
     Active Substance: SODIUM PHENYLBUTYRATE\TAURURSODIOL
  4. CELECOXIB [Concomitant]
     Active Substance: CELECOXIB
  5. ELIQUIS [Concomitant]
     Active Substance: APIXABAN

REACTIONS (1)
  - Diarrhoea [Unknown]
